FAERS Safety Report 7792145-3 (Version None)
Quarter: 2011Q4

REPORT INFORMATION
  Report Type: 
  Country: None (occurrence: None)
  Receive Date: 20111003
  Receipt Date: 20110926
  Transmission Date: 20120403
  Serious: Yes (Other)
  Sender: FDA-Public Use
  Company Number: US-TEVA-301186USA

PATIENT
  Sex: Male

DRUGS (2)
  1. COPAXONE [Suspect]
     Indication: MULTIPLE SCLEROSIS
     Route: 058
     Dates: start: 20060101, end: 20100801
  2. VICODIN [Concomitant]
     Indication: PAIN

REACTIONS (4)
  - GINGIVAL DISCOLOURATION [None]
  - GINGIVAL BLEEDING [None]
  - SUICIDE ATTEMPT [None]
  - DENTAL CARIES [None]
